FAERS Safety Report 17566015 (Version 1)
Quarter: 2020Q1

REPORT INFORMATION
  Report Type: Spontaneous
  Country: DE (occurrence: DE)
  Receive Date: 20200320
  Receipt Date: 20200320
  Transmission Date: 20200409
  Serious: Yes (Other)
  Sender: FDA-Public Use
  Company Number: DE-PFIZER INC-2020099220

PATIENT
  Age: 32 Year
  Sex: Female
  Weight: 96 kg

DRUGS (1)
  1. CYTOTEC [Suspect]
     Active Substance: MISOPROSTOL
     Indication: LABOUR INDUCTION
     Dosage: 3.5 DF, TOTAL (3X AT 4 HOUR INTERVALS: 1X AT 11:00, 1X AT 15:00, 1X AT 19:00)
     Route: 048
     Dates: start: 20190927, end: 20190927

REACTIONS (4)
  - Uterine tachysystole [Recovered/Resolved]
  - Off label use [Unknown]
  - Syncope [Recovered/Resolved]
  - Product use in unapproved indication [Unknown]

NARRATIVE: CASE EVENT DATE: 20190927
